FAERS Safety Report 6414703-0 (Version None)
Quarter: 2009Q4

REPORT INFORMATION
  Report Type: 
  Country: None (occurrence: None)
  Receive Date: 20091021
  Receipt Date: 20091005
  Transmission Date: 20100525
  Serious: Yes (Other)
  Sender: FDA-Public Use
  Company Number: 2009S1007875

PATIENT
  Sex: Male

DRUGS (11)
  1. PHOSPHOSODA FLAVOR NOT SPECIFIED [Suspect]
     Indication: COLONOSCOPY
     Dosage: PO
     Route: 048
     Dates: start: 20061221, end: 20061221
  2. PHOSPHOSODA FLAVOR NOT SPECIFIED [Suspect]
     Indication: COLONOSCOPY
     Dosage: PO
     Route: 048
     Dates: start: 20090330, end: 20090330
  3. INSULIN [Concomitant]
  4. CARDIAZEM [Concomitant]
  5. ARANESP [Concomitant]
  6. ASPIRIN [Concomitant]
  7. COREG [Concomitant]
  8. PLAVIX [Concomitant]
  9. ZOCOR [Concomitant]
  10. DOXAZOSIN MESYLATE [Concomitant]
  11. ENALAPRIL [Concomitant]

REACTIONS (1)
  - RENAL FAILURE [None]
